FAERS Safety Report 7016356-X (Version None)
Quarter: 2010Q3

REPORT INFORMATION
  Report Type: 
  Country: None (occurrence: None)
  Receive Date: 20100927
  Receipt Date: 20100915
  Transmission Date: 20110219
  Serious: Yes (Other)
  Sender: FDA-Public Use
  Company Number: JP-PFIZER INC-2010104181

PATIENT
  Age: 72 Year
  Sex: Female

DRUGS (1)
  1. ZYVOX [Suspect]
     Dosage: 600 MG, 2X/DAY
     Route: 041
     Dates: start: 20100803

REACTIONS (3)
  - HAEMOGLOBIN DECREASED [None]
  - HEARING IMPAIRED [None]
  - PLATELET COUNT DECREASED [None]
